FAERS Safety Report 17968138 (Version 1)
Quarter: 2020Q3

REPORT INFORMATION
  Report Type: Spontaneous
  Country: PT (occurrence: PT)
  Receive Date: 20200701
  Receipt Date: 20200701
  Transmission Date: 20201103
  Serious: Yes (Other)
  Sender: FDA-Public Use
  Company Number: NVSC2020PT181096

PATIENT
  Age: 56 Year
  Sex: Female

DRUGS (1)
  1. ZOMETA [Suspect]
     Active Substance: ZOLEDRONIC ACID
     Indication: MONOCLONAL GAMMOPATHY
     Dosage: 1 DF, CYCLICAL
     Route: 042
     Dates: start: 20040101, end: 20061201

REACTIONS (2)
  - Osteonecrosis [Recovered/Resolved with Sequelae]
  - Osteomyelitis chronic [Recovered/Resolved with Sequelae]

NARRATIVE: CASE EVENT DATE: 20040501
